FAERS Safety Report 9320637 (Version 1)
Quarter: 2013Q2

REPORT INFORMATION
  Report Type: Report from Study
  Country: CN (occurrence: CN)
  Receive Date: 20130531
  Receipt Date: 20130531
  Transmission Date: 20140414
  Serious: Yes (Death, Hospitalization)
  Sender: FDA-Public Use
  Company Number: CN-ROCHE-1229177

PATIENT
  Age: 43 Year
  Sex: Male
  Weight: 61 kg

DRUGS (4)
  1. MYCOPHENOLATE MOFETIL [Suspect]
     Indication: RENAL TRANSPLANT
     Route: 048
     Dates: start: 20111115
  2. CYCLOSPORINE A [Concomitant]
     Indication: RENAL TRANSPLANT
     Route: 048
     Dates: start: 20120510
  3. TACROLIMUS [Concomitant]
     Indication: RENAL TRANSPLANT
     Route: 048
     Dates: start: 20111115, end: 20120510
  4. TACROLIMUS [Concomitant]
     Route: 048
     Dates: start: 201205

REACTIONS (3)
  - Cardiac failure [Fatal]
  - Blood creatinine increased [Unknown]
  - Diarrhoea [Not Recovered/Not Resolved]
